FAERS Safety Report 11053566 (Version 2)
Quarter: 2015Q2

REPORT INFORMATION
  Report Type: Spontaneous
  Country: US (occurrence: US)
  Receive Date: 20150421
  Receipt Date: 20150603
  Transmission Date: 20150821
  Serious: No
  Sender: FDA-Public Use
  Company Number: US-BAXTER-2015BAX019762

PATIENT
  Sex: Female

DRUGS (2)
  1. STERILE WATER FOR INJECTION [Suspect]
     Active Substance: WATER
     Indication: PRODUCT USED FOR UNKNOWN INDICATION
     Route: 065
  2. STERILE WATER FOR INJECTION [Suspect]
     Active Substance: WATER
     Indication: OFF LABEL USE

REACTIONS (2)
  - Injection site nodule [Recovered/Resolved]
  - Injection site pain [Recovered/Resolved]
